FAERS Safety Report 17662543 (Version 1)
Quarter: 2020Q2

REPORT INFORMATION
  Report Type: Spontaneous
  Country: US (occurrence: US)
  Receive Date: 20200413
  Receipt Date: 20200413
  Transmission Date: 20200713
  Serious: No
  Sender: FDA-Public Use
  Company Number: US-ELI_LILLY_AND_COMPANY-US202004002091

PATIENT
  Sex: Male

DRUGS (2)
  1. MAXALT [Concomitant]
     Active Substance: RIZATRIPTAN BENZOATE
     Indication: MIGRAINE
     Dosage: 10 MG, PRN
     Route: 065
  2. EMGALITY [Suspect]
     Active Substance: GALCANEZUMAB-GNLM
     Indication: MIGRAINE PROPHYLAXIS
     Dosage: 120 MG, UNKNOWN
     Route: 058
     Dates: start: 202001

REACTIONS (15)
  - Sleep disorder [Unknown]
  - Anger [Unknown]
  - Anxiety [Unknown]
  - Fatigue [Unknown]
  - Headache [Unknown]
  - Dizziness [Unknown]
  - Memory impairment [Unknown]
  - Heart rate increased [Unknown]
  - Back pain [Unknown]
  - Depression [Unknown]
  - Palpitations [Unknown]
  - Body temperature fluctuation [Unknown]
  - Nightmare [Unknown]
  - Mood altered [Unknown]
  - Confusional state [Unknown]
